FAERS Safety Report 6569554-3 (Version None)
Quarter: 2010Q1

REPORT INFORMATION
  Report Type: 
  Country: None (occurrence: None)
  Receive Date: 20100204
  Receipt Date: 20100122
  Transmission Date: 20100710
  Serious: Yes (Other)
  Sender: FDA-Public Use
  Company Number: US-CELGENEUS-163-21880-10011797

PATIENT
  Sex: Male

DRUGS (3)
  1. REVLIMID [Suspect]
     Indication: MULTIPLE MYELOMA
     Route: 048
     Dates: start: 20091101
  2. REVLIMID [Suspect]
     Route: 048
     Dates: start: 20081101, end: 20090101
  3. REVLIMID [Suspect]
     Route: 048
     Dates: start: 20080501, end: 20080101

REACTIONS (1)
  - SKIN CANCER [None]
